FAERS Safety Report 10245333 (Version 2)
Quarter: 2014Q2

REPORT INFORMATION
  Report Type: Spontaneous
  Country: HU (occurrence: HU)
  Receive Date: 20140618
  Receipt Date: 20140618
  Transmission Date: 20141212
  Serious: Yes (Hospitalization)
  Sender: FDA-Public Use
  Company Number: HU-GE HEALTHCARE MEDICAL DIAGNOSTICS-OMPQ-PR-1405S-0530

PATIENT
  Age: 66 Year
  Sex: Male

DRUGS (3)
  1. OMNIPAQUE [Suspect]
     Indication: PERIPHERAL ARTERIAL OCCLUSIVE DISEASE
     Dosage: DOSE NOT REPORTED
     Route: 013
     Dates: start: 20140429, end: 20140429
  2. OMNIPAQUE [Suspect]
     Indication: DIAGNOSTIC PROCEDURE
  3. OMNIPAQUE [Suspect]
     Indication: ANGIOPLASTY

REACTIONS (2)
  - Anaphylactic reaction [Recovered/Resolved]
  - Electrocardiogram ST segment elevation [Recovered/Resolved]
